FAERS Safety Report 4576670-4 (Version None)
Quarter: 2005Q1

REPORT INFORMATION
  Report Type: 
  Country: None (occurrence: None)
  Receive Date: 20050210
  Receipt Date: 20050204
  Transmission Date: 20050727
  Serious: Yes (Other)
  Sender: FDA-Public Use
  Company Number: PHBS2005CL01972

PATIENT
  Age: 71 Year
  Sex: Male

DRUGS (8)
  1. TAREG D [Suspect]
     Dosage: VALS 160 / HCT 12.5 MG/QD
     Route: 048
     Dates: start: 19950101
  2. SLOW-K [Concomitant]
  3. CARDURA XL [Concomitant]
  4. EUTIROX [Concomitant]
  5. ATENOLOL [Concomitant]
  6. ECOTRIN [Concomitant]
  7. ATORVASTATIN [Concomitant]
  8. LIPITOR [Concomitant]

REACTIONS (2)
  - CARDIAC PACEMAKER INSERTION [None]
  - TRIPLE VESSEL BYPASS GRAFT [None]
